FAERS Safety Report 14537758 (Version 1)
Quarter: 2018Q1

REPORT INFORMATION
  Report Type: Spontaneous
  Country: JP (occurrence: JP)
  Receive Date: 20180215
  Receipt Date: 20180215
  Transmission Date: 20180509
  Serious: Yes (Other)
  Sender: FDA-Public Use
  Company Number: JP-BEH-2018087948

PATIENT
  Age: 5 Year
  Sex: Male

DRUGS (2)
  1. HIZENTRA [Suspect]
     Active Substance: HUMAN IMMUNOGLOBULIN G
     Indication: PRIMARY IMMUNODEFICIENCY SYNDROME
     Dosage: 12 ML, UNK
     Route: 058
     Dates: start: 20180130, end: 20180130
  2. HIZENTRA [Suspect]
     Active Substance: HUMAN IMMUNOGLOBULIN G
     Dosage: 12 ML, UNK
     Route: 058
     Dates: start: 20180208, end: 20180208

REACTIONS (2)
  - Pyrexia [Unknown]
  - Influenza [Unknown]

NARRATIVE: CASE EVENT DATE: 20180208
